FAERS Safety Report 23635206 (Version 1)
Quarter: 2024Q1

REPORT INFORMATION
  Report Type: Report from Study
  Country: US (occurrence: US)
  Receive Date: 20240315
  Receipt Date: 20240315
  Transmission Date: 20240410
  Serious: Yes (Hospitalization, Other)
  Sender: FDA-Public Use
  Company Number: US-ABBVIE-5677403

PATIENT
  Sex: Female

DRUGS (1)
  1. LINZESS [Suspect]
     Active Substance: LINACLOTIDE
     Indication: Product used for unknown indication
     Dosage: FORM STRENGTH: 145 MICROGRAM, TAKE I CAPSULE BY MOUTH EVERY DAY ONE HOUR BEFORE MEAL
     Route: 048

REACTIONS (1)
  - Intestinal obstruction [Unknown]
